FAERS Safety Report 8825427 (Version 1)
Quarter: 2012Q4

REPORT INFORMATION
  Report Type: 
  Country: RU (occurrence: RU)
  Receive Date: 20121004
  Receipt Date: 20121004
  Transmission Date: 20130627
  Serious: Yes (Hospitalization, Other)
  Sender: FDA-Public Use
  Company Number: RU-JNJFOC-20120912631

PATIENT
  Age: 46 Year
  Sex: Female
  Weight: 46 kg

DRUGS (4)
  1. DARUNAVIR [Suspect]
     Indication: ANTIVIRAL TREATMENT
     Route: 048
     Dates: start: 20120811, end: 20120819
  2. COMBIVIR [Suspect]
     Indication: ANTIVIRAL TREATMENT
     Dosage: 150 mg + 300 mg
     Route: 048
     Dates: start: 20120811, end: 20120819
  3. RITONAVIR [Suspect]
     Indication: ANTIVIRAL TREATMENT
     Route: 048
     Dates: start: 20120811, end: 20120819
  4. BISOPROLOL [Suspect]
     Indication: HYPOTENSION
     Route: 048
     Dates: start: 20111103

REACTIONS (6)
  - Toxic skin eruption [Recovered/Resolved]
  - Nephroptosis [Unknown]
  - Pyelonephritis [Unknown]
  - Asphyxia [Unknown]
  - Eosinophilia [Unknown]
  - Headache [Unknown]
